FAERS Safety Report 8137605-0 (Version None)
Quarter: 2012Q1

REPORT INFORMATION
  Report Type: 
  Country: None (occurrence: None)
  Receive Date: 20120215
  Receipt Date: 20120210
  Transmission Date: 20120608
  Serious: No
  Sender: FDA-Public Use
  Company Number: US-PFIZER INC-2012036936

PATIENT
  Sex: Female
  Weight: 71.202 kg

DRUGS (7)
  1. ZANTAC [Concomitant]
     Dosage: UNK, 75 TAB PO
     Route: 048
  2. SUTENT [Suspect]
     Dosage: 50 MG, 1X/DAY
     Route: 048
  3. PREDNISONE [Concomitant]
     Dosage: 1 MG, UNK
     Route: 048
  4. LISINOPRIL [Concomitant]
     Dosage: 5 MG, UNK
     Route: 048
  5. VITAMIN D [Suspect]
     Dosage: UNK, 400 TAB PO
     Route: 048
  6. AMLODIPINE [Concomitant]
     Dosage: 2.5 MG, UNK
     Route: 048
  7. ASCORBIC ACID [Concomitant]
     Dosage: 250 MG, UNK
     Route: 048

REACTIONS (5)
  - HYPERTENSION [None]
  - DYSGEUSIA [None]
  - DECREASED APPETITE [None]
  - WEIGHT DECREASED [None]
  - COUGH [None]
